FAERS Safety Report 18218428 (Version 1)
Quarter: 2020Q3

REPORT INFORMATION
  Report Type: Spontaneous
  Country: US (occurrence: US)
  Receive Date: 20200901
  Receipt Date: 20200901
  Transmission Date: 20201103
  Serious: Yes (Disabling, Other)
  Sender: FDA-Public Use
  Company Number: US-PURDUE-USA-2020-0163930

PATIENT
  Sex: Female

DRUGS (2)
  1. XANAX [Suspect]
     Active Substance: ALPRAZOLAM
  2. HYDROCODONE BITARTRATE AND ACETAMINOPHEN [Suspect]
     Active Substance: ACETAMINOPHEN\HYDROCODONE BITARTRATE
     Dosage: UNK
     Route: 048
     Dates: start: 2007, end: 2018

REACTIONS (8)
  - Drug dependence [Unknown]
  - Social problem [Unknown]
  - General physical health deterioration [Unknown]
  - Depression [Unknown]
  - Disability [Unknown]
  - Mental disorder [Unknown]
  - Withdrawal syndrome [Unknown]
  - Hypersomnia [Unknown]
